FAERS Safety Report 16524555 (Version 1)
Quarter: 2019Q3

REPORT INFORMATION
  Report Type: Spontaneous
  Country: US (occurrence: US)
  Receive Date: 20190702
  Receipt Date: 20190702
  Transmission Date: 20191004
  Serious: No
  Sender: FDA-Public Use
  Company Number: US-ROCHE-2192774

PATIENT
  Sex: Female
  Weight: 63.11 kg

DRUGS (3)
  1. CELLCEPT [Suspect]
     Active Substance: MYCOPHENOLATE MOFETIL\MYCOPHENOLATE MOFETIL HYDROCHLORIDE
     Indication: LICHEN PLANOPILARIS
     Dosage: ONGOING: NO
     Route: 048
  2. CELLCEPT [Suspect]
     Active Substance: MYCOPHENOLATE MOFETIL\MYCOPHENOLATE MOFETIL HYDROCHLORIDE
     Indication: AUTOIMMUNE DISORDER
     Route: 048
     Dates: start: 201806
  3. CELLCEPT [Suspect]
     Active Substance: MYCOPHENOLATE MOFETIL\MYCOPHENOLATE MOFETIL HYDROCHLORIDE
     Indication: HYPERSENSITIVITY VASCULITIS
     Dosage: ONGOING: YES
     Route: 048
     Dates: start: 2018

REACTIONS (8)
  - Weight decreased [Recovered/Resolved]
  - Off label use [Unknown]
  - Gastrointestinal disorder [Recovered/Resolved]
  - Skin laceration [Recovered/Resolved]
  - Intentional product use issue [Unknown]
  - Infection [Recovered/Resolved]
  - Cachexia [Recovered/Resolved]
  - Bilirubin excretion disorder [Recovered/Resolved]

NARRATIVE: CASE EVENT DATE: 2018
